FAERS Safety Report 6165046-4 (Version None)
Quarter: 2009Q2

REPORT INFORMATION
  Report Type: 
  Country: None (occurrence: None)
  Receive Date: 20090421
  Receipt Date: 20090421
  Transmission Date: 20091009
  Serious: No
  Sender: FDA-Public Use
  Company Number: None

PATIENT
  Age: 59 Year
  Sex: Female
  Weight: 52.6173 kg

DRUGS (2)
  1. CEFTAZIDIME [Suspect]
     Indication: CONDITION AGGRAVATED
     Dosage: 2 GM Q 12 HOURS IV BOLUS
     Route: 040
     Dates: start: 20090414, end: 20090417
  2. CEFTAZIDIME [Suspect]
     Indication: CYSTIC FIBROSIS
     Dosage: 2 GM Q 12 HOURS IV BOLUS
     Route: 040
     Dates: start: 20090414, end: 20090417

REACTIONS (7)
  - EYE PRURITUS [None]
  - LACRIMATION INCREASED [None]
  - PARAESTHESIA [None]
  - PRURITUS [None]
  - RASH [None]
  - STOMATITIS [None]
  - URTICARIA [None]
